FAERS Safety Report 7465471-5 (Version None)
Quarter: 2011Q2

REPORT INFORMATION
  Report Type: 
  Country: None (occurrence: None)
  Receive Date: 20110428
  Receipt Date: 20110415
  Transmission Date: 20111010
  Serious: Yes (Hospitalization)
  Sender: FDA-Public Use
  Company Number: AUR-APL-2011-01070

PATIENT
  Age: 71 Year
  Sex: Male
  Weight: 83.9 kg

DRUGS (17)
  1. PREDNISONE [Concomitant]
  2. WARFARIN SODIUM [Concomitant]
  3. LASIX [Concomitant]
  4. PRINIVIL [Concomitant]
  5. LANOXIN [Concomitant]
  6. METHIMAZOLE [Suspect]
     Indication: HYPERTHYROIDISM
     Dosage: 10MG, BID, ORAL
     Route: 048
     Dates: start: 20110204, end: 20110315
  7. FLOMAX [Concomitant]
  8. LIRAGLUTIDE [Concomitant]
  9. COREG [Concomitant]
  10. LANTUS [Concomitant]
  11. NOVOLOG [Concomitant]
  12. EPLERENONE [Suspect]
     Indication: CARDIAC FAILURE CONGESTIVE
     Dosage: 25MG, QOD, ORAL
     Route: 048
     Dates: start: 20100915
  13. VITAMIN B-12 [Concomitant]
  14. ASPIRIN [Concomitant]
  15. SIMVASTATIN [Suspect]
     Dosage: 40MG, DAILY, ORAL
     Route: 048
     Dates: start: 20050429, end: 20110315
  16. AMIODARONE HCL [Suspect]
     Dosage: 200MG, DAILY, ORAL
     Route: 048
     Dates: start: 20070712
  17. COLECALCIFEROL [Concomitant]

REACTIONS (9)
  - FAT NECROSIS [None]
  - LIVER FUNCTION TEST ABNORMAL [None]
  - THYROIDITIS [None]
  - CHOLELITHIASIS [None]
  - BLOOD GLUCOSE INCREASED [None]
  - ASTHENIA [None]
  - AXILLARY MASS [None]
  - HAEMATOMA [None]
  - JAUNDICE [None]
